FAERS Safety Report 4474220-4 (Version None)
Quarter: 2004Q4

REPORT INFORMATION
  Report Type: 
  Country: None (occurrence: None)
  Receive Date: 20041008
  Receipt Date: 20040922
  Transmission Date: 20050328
  Serious: Yes (Hospitalization)
  Sender: FDA-Public Use
  Company Number: 2004-00551

PATIENT
  Age: 70 Year
  Sex: Female

DRUGS (7)
  1. INTEGRILIN [Suspect]
     Indication: CORONARY ANGIOPLASTY
     Dosage: SEE IMAGE
     Route: 042
     Dates: start: 20040920, end: 20040920
  2. INTEGRILIN [Suspect]
     Indication: CORONARY ANGIOPLASTY
     Dosage: SEE IMAGE
     Route: 042
     Dates: start: 20040920, end: 20040920
  3. CLOPIDOGREL (CLOPIDOGREL) [Concomitant]
  4. ACETYLSALICYLIC ACID (AETYLSALICYLIC ACID) [Concomitant]
  5. METOPROLOL TARTRATE [Concomitant]
  6. RAMIPRIL [Concomitant]
  7. ATORVASTATIN (ATORVASTATIN) [Concomitant]

REACTIONS (3)
  - ANAEMIA [None]
  - HYPOTENSION [None]
  - TACHYCARDIA [None]
